FAERS Safety Report 17123480 (Version 6)
Quarter: 2020Q3

REPORT INFORMATION
  Report Type: Spontaneous
  Country: US (occurrence: US)
  Receive Date: 20191206
  Receipt Date: 20200720
  Transmission Date: 20201102
  Serious: Yes (Death, Hospitalization)
  Sender: FDA-Public Use
  Company Number: US-PFIZER INC-2019307258

PATIENT
  Age: 67 Year
  Sex: Male
  Weight: 70 kg

DRUGS (5)
  1. VFEND [Suspect]
     Active Substance: VORICONAZOLE
     Indication: ACUTE MYELOID LEUKAEMIA
     Dosage: 200 MG, 2X/DAY (1 PILL IN THE MORNING AND 1 PILL AT NIGHT/HE TAKES ONE PILL EVERY TWELVE HOURS)
     Route: 048
     Dates: start: 20190605
  2. CLADRIBINE. [Concomitant]
     Active Substance: CLADRIBINE
     Indication: ACUTE MYELOID LEUKAEMIA
     Dosage: 9 MG, UNK (9MG EVERY 24 HOURS FOR 5 DOSES)
     Route: 042
     Dates: start: 20190605, end: 20190610
  3. CYTARABINE. [Concomitant]
     Active Substance: CYTARABINE
     Indication: ACUTE MYELOID LEUKAEMIA
     Dosage: 2800 MG, UNK (2800MG EVERY 24 HOURS FOR 5 DOSES)
     Route: 042
     Dates: start: 20190605, end: 20190610
  4. VFEND [Suspect]
     Active Substance: VORICONAZOLE
     Indication: IMMUNOSUPPRESSANT DRUG THERAPY
  5. VFEND [Suspect]
     Active Substance: VORICONAZOLE
     Indication: ANTIFUNGAL PROPHYLAXIS

REACTIONS (8)
  - Weight decreased [Unknown]
  - Cytomegalovirus test positive [Unknown]
  - Death [Fatal]
  - Off label use [Unknown]
  - Product dispensing error [Unknown]
  - Diarrhoea [Recovering/Resolving]
  - Product prescribing error [Unknown]
  - Product use in unapproved indication [Unknown]

NARRATIVE: CASE EVENT DATE: 20190605
